FAERS Safety Report 9627886 (Version 2)
Quarter: 2013Q4

REPORT INFORMATION
  Report Type: Not Available
  Country: US (occurrence: US)
  Receive Date: 20131016
  Receipt Date: 20131016
  Transmission Date: 20140711
  Serious: Yes (Hospitalization)
  Sender: FDA-Public Use
  Company Number: US-LUNDBECK-DKLU1092912

PATIENT
  Age: 20 Year
  Sex: Female
  Weight: 40 kg

DRUGS (8)
  1. SABRIL (FOR ORAL SOLUTION) [Suspect]
     Indication: COMPLEX PARTIAL SEIZURES
     Route: 048
     Dates: start: 20091210
  2. SABRIL (FOR ORAL SOLUTION) [Suspect]
     Route: 048
     Dates: start: 20091210
  3. PHENOBARBITAL [Concomitant]
     Indication: PRODUCT USED FOR UNKNOWN INDICATION
  4. DEPAKOTE [Concomitant]
     Indication: EPILEPSY
     Dosage: 250 MG/5ML(10 CC)
  5. DILANTIN [Concomitant]
     Indication: PRODUCT USED FOR UNKNOWN INDICATION
  6. BANZEL [Concomitant]
     Indication: EPILEPSY
     Route: 048
  7. BANZEL [Concomitant]
     Route: 048
  8. RISPERDAL [Concomitant]
     Indication: EPILEPSY
     Route: 048

REACTIONS (3)
  - Convulsion [Recovered/Resolved]
  - Status epilepticus [Recovered/Resolved]
  - Drug dose omission [Recovered/Resolved]
